FAERS Safety Report 4609768-2 (Version None)
Quarter: 2005Q1

REPORT INFORMATION
  Report Type: 
  Country: None (occurrence: None)
  Receive Date: 20050314
  Receipt Date: 20050314
  Transmission Date: 20050727
  Serious: Yes (Other)
  Sender: FDA-Public Use
  Company Number: None

PATIENT
  Age: 65 Year
  Sex: Female
  Weight: 56.6996 kg

DRUGS (6)
  1. LISINOPRIL [Suspect]
     Indication: HYPERTENSION
     Dosage: ONE PO QD
     Route: 048
     Dates: start: 20040201, end: 20041001
  2. NIFEDINE XL [Concomitant]
  3. HYDROCHLOROTHIAZIDE [Concomitant]
  4. KLOR-CON [Concomitant]
  5. M.V.I. [Concomitant]
  6. CALCIUM GLUCONATE [Concomitant]

REACTIONS (1)
  - COUGH [None]
